FAERS Safety Report 9831897 (Version 1)
Quarter: 2014Q1

REPORT INFORMATION
  Report Type: Spontaneous
  Country: US (occurrence: US)
  Receive Date: 20140121
  Receipt Date: 20140121
  Transmission Date: 20141002
  Serious: No
  Sender: FDA-Public Use
  Company Number: US-PFIZER INC-2014014571

PATIENT
  Sex: Female

DRUGS (2)
  1. FLAGYL [Suspect]
     Dosage: 1 DF, 2X/DAY
  2. FLAGYL [Suspect]
     Dosage: 0.5 DF, 4X/DAY

REACTIONS (3)
  - Palpitations [Recovered/Resolved]
  - Rash [Unknown]
  - Pruritus [Unknown]
